FAERS Safety Report 22189446 (Version 3)
Quarter: 2023Q2

REPORT INFORMATION
  Report Type: Report from Study
  Country: US (occurrence: US)
  Receive Date: 20230410
  Receipt Date: 20230419
  Transmission Date: 20230722
  Serious: Yes (Other)
  Sender: FDA-Public Use
  Company Number: US-002147023-NVSC2023US079202

PATIENT
  Sex: Female

DRUGS (1)
  1. PROMACTA [Suspect]
     Active Substance: ELTROMBOPAG OLAMINE
     Indication: Product used for unknown indication
     Dosage: UNK
     Route: 065

REACTIONS (7)
  - Hepatic cirrhosis [Unknown]
  - Thrombocytopenia [Unknown]
  - Blood disorder [Unknown]
  - Cardiac murmur [Unknown]
  - Cholelithiasis [Unknown]
  - Vomiting [Unknown]
  - White blood cell count decreased [Unknown]
